FAERS Safety Report 7132183-7 (Version None)
Quarter: 2010Q4

REPORT INFORMATION
  Report Type: 
  Country: None (occurrence: None)
  Receive Date: 20101202
  Receipt Date: 20101124
  Transmission Date: 20110411
  Serious: Yes (Other)
  Sender: FDA-Public Use
  Company Number: SN-NOVOPROD-318233

PATIENT
  Age: 62 Year
  Sex: Male

DRUGS (15)
  1. VICTOZA [Suspect]
     Indication: TYPE 2 DIABETES MELLITUS
     Dosage: 1.6 MG, QD
     Route: 058
     Dates: start: 20100101, end: 20101101
  2. GLIMEPIRID [Concomitant]
     Indication: TYPE 2 DIABETES MELLITUS
     Dosage: 2 MG, BID
     Dates: start: 20090612, end: 20100422
  3. GLIMEPIRID [Concomitant]
     Dosage: 2 MG, BID
     Dates: start: 20100812
  4. METFORMIN [Concomitant]
     Indication: TYPE 2 DIABETES MELLITUS
     Dosage: 500 MG, BID
     Dates: start: 20080101, end: 20090501
  5. METFORMIN [Concomitant]
     Dosage: 500 MG, BID
     Dates: start: 20090525
  6. METFORMIN [Concomitant]
     Dosage: 1000 MG, BID
     Dates: start: 20090501, end: 20090529
  7. METFORMIN [Concomitant]
     Dosage: 500 MG, TID
     Dates: start: 20090612
  8. METFORMIN [Concomitant]
     Dosage: 500 MGX5
     Dates: start: 20101101
  9. ROSIGLITAZONE [Concomitant]
     Dosage: 2 MG, UNK
     Dates: start: 20090501, end: 20090501
  10. GLUCOVANCE [Concomitant]
     Dosage: 5/500 MG
     Dates: start: 20090501, end: 20090612
  11. DIAMICRON [Concomitant]
     Dosage: 30 MG, BID
     Dates: start: 20090612
  12. SIMVASTATIN [Concomitant]
     Dosage: 20 MG, QD
     Dates: end: 20091029
  13. ATORFIT [Concomitant]
     Dosage: 20 MG, QD
     Dates: start: 20091029, end: 20100422
  14. AVANDIA [Concomitant]
     Dosage: 4 MG, BID
     Dates: start: 20100422, end: 20100801
  15. LANTUS [Concomitant]
     Dosage: UNK
     Dates: start: 20101101

REACTIONS (5)
  - ALANINE AMINOTRANSFERASE INCREASED [None]
  - ASPARTATE AMINOTRANSFERASE INCREASED [None]
  - FATIGUE [None]
  - GAMMA-GLUTAMYLTRANSFERASE INCREASED [None]
  - GLYCOSYLATED HAEMOGLOBIN INCREASED [None]
